FAERS Safety Report 6369925-4 (Version None)
Quarter: 2009Q3

REPORT INFORMATION
  Report Type: 
  Country: None (occurrence: None)
  Receive Date: 20090923
  Receipt Date: 20080201
  Transmission Date: 20100115
  Serious: Yes (Other)
  Sender: FDA-Public Use
  Company Number: US-ASTRAZENECA-2006UW11175

PATIENT
  Age: 480 Month
  Sex: Male
  Weight: 112.5 kg

DRUGS (9)
  1. SEROQUEL [Suspect]
     Indication: BIPOLAR DISORDER
     Route: 048
     Dates: start: 20020101, end: 20040101
  2. SEROQUEL [Suspect]
     Indication: DEPRESSION
     Route: 048
     Dates: start: 20020101, end: 20040101
  3. SEROQUEL [Suspect]
     Indication: ANXIETY
     Route: 048
     Dates: start: 20020101, end: 20040101
  4. METFORMIN HCL [Concomitant]
     Dates: start: 20050112
  5. ASPIRIN [Concomitant]
     Dates: start: 20050112
  6. ENALAPRIL MALEATE [Concomitant]
     Route: 048
     Dates: start: 20050112
  7. LOPRESSOR [Concomitant]
     Route: 048
     Dates: start: 20050112
  8. DEPAKOTE [Concomitant]
     Dosage: 500 MG ON AM, 1000 MG ON PM
     Route: 048
     Dates: start: 20050112
  9. GLIPIZIDE [Concomitant]
     Dates: start: 20050112

REACTIONS (3)
  - DIABETES MELLITUS [None]
  - DIABETES MELLITUS INADEQUATE CONTROL [None]
  - DIABETIC COMA [None]
